FAERS Safety Report 8865826 (Version 1)
Quarter: 2012Q4

REPORT INFORMATION
  Report Type: 
  Country: US (occurrence: US)
  Receive Date: 20121024
  Receipt Date: 20121024
  Transmission Date: 20130627
  Serious: No
  Sender: FDA-Public Use
  Company Number: US-AMGEN-USASP2011065030

PATIENT
  Age: 65 Year
  Sex: Female

DRUGS (3)
  1. ENBREL [Suspect]
     Indication: RHEUMATOID ARTHRITIS
     Dosage: 50 mg, qwk
     Dates: start: 20090901
  2. METHOTREXATE [Concomitant]
     Dosage: 10 mg, qwk
     Dates: start: 200907
  3. HYDROXYCHLOROQUINE [Concomitant]
     Dosage: 200 mg, qd
     Dates: start: 200907

REACTIONS (6)
  - Mobility decreased [Unknown]
  - Pain [Unknown]
  - Joint swelling [Recovered/Resolved]
  - Fatigue [Recovered/Resolved]
  - False positive tuberculosis test [Recovered/Resolved]
  - Seasonal allergy [Recovered/Resolved]
